FAERS Safety Report 5828855-4 (Version None)
Quarter: 2008Q3

REPORT INFORMATION
  Report Type: 
  Country: None (occurrence: None)
  Receive Date: 20080731
  Receipt Date: 20080725
  Transmission Date: 20090109
  Serious: Yes (Hospitalization)
  Sender: FDA-Public Use
  Company Number: US-ASTRAZENECA-2008UW14549

PATIENT
  Age: 42 Year
  Sex: Male
  Weight: 92.5 kg

DRUGS (5)
  1. SEROQUEL [Suspect]
     Indication: BIPOLAR I DISORDER
     Route: 048
  2. SEROQUEL [Suspect]
     Route: 048
  3. SEROQUEL [Suspect]
     Route: 048
  4. PAXIL [Concomitant]
  5. ATIVAN [Concomitant]

REACTIONS (5)
  - ABDOMINAL PAIN [None]
  - DISCOMFORT [None]
  - DRY MOUTH [None]
  - HOSPITALISATION [None]
  - OROPHARYNGEAL PAIN [None]
